FAERS Safety Report 6011985-4 (Version None)
Quarter: 2008Q4

REPORT INFORMATION
  Report Type: 
  Country: None (occurrence: None)
  Receive Date: 20081218
  Receipt Date: 20081020
  Transmission Date: 20090506
  Serious: No
  Sender: FDA-Public Use
  Company Number: US-ASTRAZENECA-2008UW23143

PATIENT
  Age: 66 Year
  Sex: Female

DRUGS (5)
  1. CRESTOR [Suspect]
     Indication: BLOOD CHOLESTEROL INCREASED
     Route: 048
     Dates: end: 20080901
  2. LEXAPRO [Suspect]
     Indication: ANXIETY
     Route: 048
     Dates: start: 20070901, end: 20080901
  3. LEXAPRO [Suspect]
     Indication: DEPRESSION
     Route: 048
     Dates: start: 20070901, end: 20080901
  4. SYNTHROID [Suspect]
     Indication: HYPOTHYROIDISM
     Route: 048
     Dates: start: 19930101, end: 20080801
  5. SYNTHROID [Suspect]
     Dosage: 100MCG DAILY
     Route: 048
     Dates: start: 20080801

REACTIONS (1)
  - ALOPECIA [None]
